FAERS Safety Report 9517429 (Version 2)
Quarter: 2014Q1

REPORT INFORMATION
  Report Type: Spontaneous
  Country: GB (occurrence: GB)
  Receive Date: 20130911
  Receipt Date: 20140130
  Transmission Date: 20141002
  Serious: Yes (Other)
  Sender: FDA-Public Use
  Company Number: GB-WATSON-2013-16214

PATIENT
  Age: 12 Year
  Sex: Male

DRUGS (3)
  1. TOPIRAMATE (UNKNOWN) [Suspect]
     Indication: MIGRAINE PROPHYLAXIS
     Dosage: 30 MG, BID
     Route: 048
     Dates: start: 201303, end: 201306
  2. IBUPROFEN [Concomitant]
     Indication: PRODUCT USED FOR UNKNOWN INDICATION
     Dosage: UNK
     Route: 065
  3. SUMATRIPTAN [Concomitant]
     Indication: PRODUCT USED FOR UNKNOWN INDICATION
     Dosage: UNK
     Route: 065

REACTIONS (3)
  - Tonsillitis [Recovered/Resolved with Sequelae]
  - Adenoiditis [Recovered/Resolved with Sequelae]
  - Pyrexia [Recovered/Resolved]
